FAERS Safety Report 17245973 (Version 50)
Quarter: 2025Q1

REPORT INFORMATION
  Report Type: Report from Study
  Country: US (occurrence: US)
  Receive Date: 20200108
  Receipt Date: 20250303
  Transmission Date: 20250409
  Serious: Yes (Hospitalization, Other)
  Sender: TAKEDA
  Company Number: US-SHIRE-US202000231

PATIENT
  Age: 42 Year
  Sex: Female
  Weight: 152 kg

DRUGS (57)
  1. HUMAN IMMUNOGLOBULIN G\HYALURONIDASE RECOMBINANT HUMAN [Suspect]
     Active Substance: HUMAN IMMUNOGLOBULIN G\HYALURONIDASE (HUMAN RECOMBINANT)
     Indication: Immunodeficiency common variable
     Dosage: 45 GRAM, Q4WEEKS
     Dates: start: 20161227
  2. HUMAN IMMUNOGLOBULIN G\HYALURONIDASE RECOMBINANT HUMAN [Suspect]
     Active Substance: HUMAN IMMUNOGLOBULIN G\HYALURONIDASE (HUMAN RECOMBINANT)
     Indication: Primary immunodeficiency syndrome
     Dosage: 45 GRAM, Q4WEEKS
  3. HUMAN IMMUNOGLOBULIN G\HYALURONIDASE RECOMBINANT HUMAN [Suspect]
     Active Substance: HUMAN IMMUNOGLOBULIN G\HYALURONIDASE (HUMAN RECOMBINANT)
     Dosage: 20 GRAM, Q2WEEKS
     Dates: start: 20210406
  4. CUVITRU [Suspect]
     Active Substance: HUMAN IMMUNOGLOBULIN G
     Indication: Immunodeficiency common variable
     Dosage: 20 GRAM, Q2WEEKS
     Dates: start: 20210406
  5. CUVITRU [Suspect]
     Active Substance: HUMAN IMMUNOGLOBULIN G
     Indication: Primary immunodeficiency syndrome
     Dosage: 20 GRAM, Q2WEEKS
     Dates: start: 20210514
  6. CUVITRU [Suspect]
     Active Substance: HUMAN IMMUNOGLOBULIN G
     Indication: Immune system disorder
  7. CUVITRU [Suspect]
     Active Substance: HUMAN IMMUNOGLOBULIN G
     Indication: Hypergammaglobulinaemia
  8. CUVITRU [Suspect]
     Active Substance: HUMAN IMMUNOGLOBULIN G
     Dosage: 20 GRAM, Q2WEEKS
  9. CUVITRU [Suspect]
     Active Substance: HUMAN IMMUNOGLOBULIN G
  10. ACETAMINOPHEN [Concomitant]
     Active Substance: ACETAMINOPHEN
  11. EPINEPHRINE [Concomitant]
     Active Substance: EPINEPHRINE
  12. FLOVENT HFA [Concomitant]
     Active Substance: FLUTICASONE PROPIONATE
  13. TUMS [Concomitant]
     Active Substance: CALCIUM CARBONATE
  14. ALLEGRA ALLERGY [Concomitant]
     Active Substance: FEXOFENADINE HYDROCHLORIDE
  15. VIRTUSSIN AC [Concomitant]
     Active Substance: CODEINE PHOSPHATE\GUAIFENESIN
  16. VITAMIN B COMPLEX [Concomitant]
     Active Substance: CYANOCOBALAMIN\DEXPANTHENOL\NIACINAMIDE\PYRIDOXINE HYDROCHLORIDE\RIBOFLAVIN 5^-PHOSPHATE SODIUM\THIA
  17. WELLBUTRIN SR [Concomitant]
     Active Substance: BUPROPION HYDROCHLORIDE
  18. NEURONTIN [Concomitant]
     Active Substance: GABAPENTIN
  19. BACLOFEN [Concomitant]
     Active Substance: BACLOFEN
  20. TOPAMAX [Concomitant]
     Active Substance: TOPIRAMATE
  21. VITAMINS [Concomitant]
     Active Substance: VITAMINS
  22. VITAMIN D3 [Concomitant]
     Active Substance: CHOLECALCIFEROL
  23. PROAIR HFA [Concomitant]
     Active Substance: ALBUTEROL SULFATE
  24. VOLTAREN [Concomitant]
     Active Substance: DICLOFENAC SODIUM
  25. TRAMADOL HCL [Concomitant]
     Active Substance: TRAMADOL HYDROCHLORIDE
  26. MONTELUKAST SODIUM [Concomitant]
     Active Substance: MONTELUKAST SODIUM
  27. BENADRYL [Concomitant]
     Active Substance: DIPHENHYDRAMINE HYDROCHLORIDE
  28. GAS-X [Concomitant]
     Active Substance: DIMETHICONE
  29. Pentazocine and Naloxone Hydrochloride [Concomitant]
  30. Lmx [Concomitant]
  31. DIPHENHYDRAMINE [Concomitant]
     Active Substance: DIPHENHYDRAMINE
  32. NASONEX [Concomitant]
     Active Substance: MOMETASONE FUROATE
  33. MUCINEX [Concomitant]
     Active Substance: GUAIFENESIN
  34. BACTRIM [Concomitant]
     Active Substance: SULFAMETHOXAZOLE\TRIMETHOPRIM
  35. MECLIZINE HYDROCHLORIDE [Concomitant]
     Active Substance: MECLIZINE HYDROCHLORIDE
  36. VITAMIN B [Concomitant]
     Active Substance: VITAMIN B
  37. QUETIAPINE [Concomitant]
     Active Substance: QUETIAPINE
  38. PAXIL [Concomitant]
     Active Substance: PAROXETINE HYDROCHLORIDE
  39. BUPRENORPHINE [Concomitant]
     Active Substance: BUPRENORPHINE
  40. SODIUM CHLORIDE [Concomitant]
     Active Substance: SODIUM CHLORIDE
  41. VISTARIL [Concomitant]
     Active Substance: HYDROXYZINE PAMOATE
  42. MORPHINE [Concomitant]
     Active Substance: MORPHINE
  43. OXYMORPHONE [Concomitant]
     Active Substance: OXYMORPHONE
  44. GENTEAL MILD [Concomitant]
     Active Substance: HYPROMELLOSE 2910 (4000 MPA.S)
  45. TYLENOL [Concomitant]
     Active Substance: ACETAMINOPHEN
  46. ORPHENADRINE [Concomitant]
     Active Substance: ORPHENADRINE
  47. ZANTAC [Concomitant]
     Active Substance: RANITIDINE HYDROCHLORIDE
  48. FIORICET [Concomitant]
     Active Substance: ACETAMINOPHEN\BUTALBITAL\CAFFEINE
  49. BROMPHENIRAMINE MALEATE;PSEUDOEPHEDRINE [Concomitant]
  50. CODEINE [Concomitant]
     Active Substance: CODEINE
  51. OXYMORPHONE HYDROCHLORIDE [Concomitant]
     Active Substance: OXYMORPHONE HYDROCHLORIDE
  52. SUPER B 50 COMPLEX [Concomitant]
  53. QUETIAPINE FUMARATE [Concomitant]
     Active Substance: QUETIAPINE FUMARATE
  54. TYLENOL WITH CODEINE [Concomitant]
     Active Substance: ACETAMINOPHEN\CODEINE PHOSPHATE
  55. PRAMIPEXOLE [Concomitant]
     Active Substance: PRAMIPEXOLE
  56. DIPHENHYDRAMINE HYDROCHLORIDE [Concomitant]
     Active Substance: DIPHENHYDRAMINE HYDROCHLORIDE
  57. FLOVENT [Concomitant]
     Active Substance: FLUTICASONE PROPIONATE

REACTIONS (40)
  - Irritable bowel syndrome [Recovered/Resolved]
  - Pancreatic disorder [Recovered/Resolved]
  - Systemic lupus erythematosus [Unknown]
  - Ankle fracture [Unknown]
  - Foot fracture [Unknown]
  - Sinusitis [Not Recovered/Not Resolved]
  - Influenza [Unknown]
  - Bronchitis [Unknown]
  - Illness [Unknown]
  - Fall [Unknown]
  - Limb injury [Unknown]
  - Intervertebral disc degeneration [Unknown]
  - Weight increased [Unknown]
  - Nasopharyngitis [Recovered/Resolved]
  - Pain [Unknown]
  - Dermatitis contact [Unknown]
  - Vitamin D decreased [Unknown]
  - Administration site haemorrhage [Unknown]
  - COVID-19 [Not Recovered/Not Resolved]
  - Bursitis [Unknown]
  - Aphonia [Unknown]
  - Blood iron decreased [Unknown]
  - Upper respiratory tract infection [Unknown]
  - Thinking abnormal [Unknown]
  - Sleep disorder [Unknown]
  - Electric shock sensation [Unknown]
  - Product dose omission issue [Unknown]
  - Inappropriate schedule of product administration [Unknown]
  - Incorrect dose administered [Unknown]
  - Head injury [Unknown]
  - Osteoporosis [Unknown]
  - Back injury [Unknown]
  - Migraine [Unknown]
  - Asthenia [Unknown]
  - Infusion site extravasation [Unknown]
  - Arthralgia [Unknown]
  - Infusion site pain [Recovered/Resolved]
  - Fatigue [Unknown]
  - Nausea [Unknown]
  - Headache [Unknown]

NARRATIVE: CASE EVENT DATE: 20200101
